FAERS Safety Report 7420761-7 (Version None)
Quarter: 2011Q2

REPORT INFORMATION
  Report Type: 
  Country: None (occurrence: None)
  Receive Date: 20110418
  Receipt Date: 20110412
  Transmission Date: 20111010
  Serious: Yes (Death)
  Sender: FDA-Public Use
  Company Number: FR-ASTRAZENECA-2011SE19023

PATIENT
  Age: 777 Month
  Sex: Female
  Weight: 56 kg

DRUGS (4)
  1. IRESSA [Suspect]
     Route: 048
     Dates: end: 20110320
  2. IRESSA [Suspect]
     Indication: LUNG NEOPLASM MALIGNANT
     Route: 048
     Dates: start: 20101015
  3. FORTIMEL [Concomitant]
     Indication: DECREASED APPETITE
  4. MOVIPREP [Concomitant]
     Indication: CONSTIPATION

REACTIONS (4)
  - DERMATITIS [None]
  - VULVOVAGINITIS [None]
  - ACUTE RESPIRATORY DISTRESS SYNDROME [None]
  - CONJUNCTIVITIS [None]
